FAERS Safety Report 19954990 (Version 1)
Quarter: 2021Q4

REPORT INFORMATION
  Report Type: Spontaneous
  Country: JP (occurrence: JP)
  Receive Date: 20211013
  Receipt Date: 20211013
  Transmission Date: 20220303
  Serious: Yes (Other)
  Sender: FDA-Public Use
  Company Number: JP-PFIZER INC-2021860353

PATIENT
  Sex: Female

DRUGS (1)
  1. DEPO-MEDROL [Suspect]
     Active Substance: METHYLPREDNISOLONE ACETATE
     Indication: Arthralgia
     Dosage: 1 BOTTLE OF 20MG 1ML
     Dates: start: 2016, end: 2016

REACTIONS (8)
  - Haematemesis [Unknown]
  - Abdominal pain upper [Unknown]
  - Injection site swelling [Unknown]
  - Feeling abnormal [Unknown]
  - Vomiting [Unknown]
  - White blood cell count increased [Unknown]
  - Nausea [Unknown]
  - Gastritis [Unknown]
